FAERS Safety Report 8217768 (Version 13)
Quarter: 2015Q1

REPORT INFORMATION
  Report Type: Spontaneous
  Country: US (occurrence: US)
  Receive Date: 20111101
  Receipt Date: 20150326
  Transmission Date: 20150721
  Serious: Yes (Hospitalization, Other)
  Sender: FDA-Public Use
  Company Number: US-GLAXOSMITHKLINE-A0951404A

PATIENT
  Age: 34 Year
  Sex: Female
  Weight: 80 kg

DRUGS (9)
  1. FLOLAN [Suspect]
     Active Substance: EPOPROSTENOL SODIUM
     Dosage: UNK
     Dates: start: 20070125
  2. FLOLAN [Suspect]
     Active Substance: EPOPROSTENOL SODIUM
     Dosage: UNK
     Dates: start: 20070125
  3. LETAIRIS [Concomitant]
     Active Substance: AMBRISENTAN
  4. FLOLAN [Suspect]
     Active Substance: EPOPROSTENOL SODIUM
     Dosage: UNK
     Dates: start: 20070125
  5. FLOLAN [Suspect]
     Active Substance: EPOPROSTENOL SODIUM
     Dosage: UNK
     Dates: start: 20070125
  6. FLOLAN [Suspect]
     Active Substance: EPOPROSTENOL SODIUM
     Dosage: UNK
     Dates: start: 20070125
  7. REVATIO [Concomitant]
     Active Substance: SILDENAFIL CITRATE
  8. FLOLAN [Suspect]
     Active Substance: EPOPROSTENOL SODIUM
     Indication: PULMONARY ARTERIAL HYPERTENSION
     Dosage: 41.5 NG/KG/MIN, CO
     Route: 065
     Dates: start: 20070125
  9. FLOLAN [Suspect]
     Active Substance: EPOPROSTENOL SODIUM
     Dosage: 48.5 NG/KG/MIN, CO
     Route: 065

REACTIONS (15)
  - Obsessive-compulsive disorder [Recovered/Resolved]
  - Ovarian cyst ruptured [Recovered/Resolved]
  - Hospitalisation [Unknown]
  - Device related infection [Unknown]
  - Skin infection [Recovered/Resolved]
  - Adverse event [Recovered/Resolved]
  - Syncope [Recovered/Resolved]
  - Procedural complication [Recovered/Resolved]
  - Central venous catheterisation [Unknown]
  - Administration site erythema [Recovered/Resolved]
  - Memory impairment [Recovered/Resolved]
  - Elevated mood [Recovered/Resolved]
  - Surgery [Recovered/Resolved]
  - Catheter site cellulitis [Recovered/Resolved]
  - Dizziness [Recovered/Resolved]

NARRATIVE: CASE EVENT DATE: 20111024
